FAERS Safety Report 6660545-0 (Version None)
Quarter: 2010Q1

REPORT INFORMATION
  Report Type: 
  Country: None (occurrence: None)
  Receive Date: 20100331
  Receipt Date: 20100331
  Transmission Date: 20100710
  Serious: Yes (Hospitalization)
  Sender: FDA-Public Use
  Company Number: PHHO2007HK12050

PATIENT
  Sex: Female
  Weight: 46.8 kg

DRUGS (2)
  1. ACLASTA/ZOLEDRONATE T29581+A+SOLINJ [Suspect]
     Indication: OSTEOPOROSIS POSTMENOPAUSAL
     Dosage: 5 MG ONCE A YEAR
     Route: 042
     Dates: start: 20060623
  2. CALTRATE +D [Concomitant]
     Indication: OSTEOPOROSIS POSTMENOPAUSAL
     Dates: start: 20030226

REACTIONS (6)
  - ABDOMINAL DISCOMFORT [None]
  - COLON ADENOMA [None]
  - COLONIC POLYP [None]
  - COLONOSCOPY [None]
  - GASTRITIS [None]
  - RECTAL HAEMORRHAGE [None]
